FAERS Safety Report 22144025 (Version 1)
Quarter: 2023Q1

REPORT INFORMATION
  Report Type: Spontaneous
  Country: CN (occurrence: CN)
  Receive Date: 20230327
  Receipt Date: 20230327
  Transmission Date: 20230418
  Serious: Yes (Hospitalization, Other)
  Sender: FDA-Public Use
  Company Number: CN-BRISTOL-MYERS SQUIBB COMPANY-2023-040786

PATIENT
  Age: 58 Year
  Sex: Female
  Weight: 50.00 kg

DRUGS (1)
  1. OPDIVO [Suspect]
     Active Substance: NIVOLUMAB
     Indication: Lung adenocarcinoma
     Route: 041
     Dates: start: 20221220, end: 20230215

REACTIONS (12)
  - Drug eruption [Recovering/Resolving]
  - Bronchiectasis [Unknown]
  - Hyperplasia adrenal [Unknown]
  - Pneumonitis [Unknown]
  - Lymphadenopathy [Unknown]
  - Hepatic cyst [Unknown]
  - Hepatic lesion [Unknown]
  - Retroperitoneal fibrosis [Unknown]
  - Pyelocaliectasis [Unknown]
  - Uterine disorder [Unknown]
  - Prescribed underdose [Unknown]
  - Electrolyte imbalance [Unknown]

NARRATIVE: CASE EVENT DATE: 20221201
